FAERS Safety Report 10090557 (Version 2)
Quarter: 2014Q2

REPORT INFORMATION
  Report Type: Spontaneous
  Country: US (occurrence: None)
  Receive Date: 20140417
  Receipt Date: 20140609
  Transmission Date: 20141212
  Serious: Yes (Hospitalization, Other)
  Sender: FDA-Public Use
  Company Number: UTC-046626

PATIENT
  Age: 34 Year
  Sex: Female
  Weight: 121.5 kg

DRUGS (5)
  1. REMODULIN (5 MILLIGRAM/ MILLILITERS, INJECTION FOR INFUSION) (TREPROSTINIL SODIUM) [Suspect]
     Indication: PULMONARY ARTERIAL HYPERTENSION
     Dosage: (0.027 UG/KG, 1 IN 1 MIN)
     Route: 041
     Dates: start: 20131224
  2. SILDENAFIL [Concomitant]
  3. TRACLEER (BOSENTAN) [Concomitant]
  4. WARFARIN [Concomitant]
  5. REVATIO (SILDENAFIL CITRATE) [Concomitant]

REACTIONS (2)
  - Skin infection [None]
  - Device related infection [None]
